FAERS Safety Report 10344205 (Version 1)
Quarter: 2014Q3

REPORT INFORMATION
  Report Type: Spontaneous
  Country: IT (occurrence: None)
  Receive Date: 20140724
  Receipt Date: 20140724
  Transmission Date: 20150326
  Serious: Yes (Other)
  Sender: FDA-Public Use
  Company Number: SYM-2014-23128

PATIENT
  Age: 78 Year
  Sex: Female

DRUGS (3)
  1. DULOXETINE [Suspect]
     Active Substance: DULOXETINE
     Indication: DEPRESSION
  2. CITALOPRAM (CITALOPRAM) [Concomitant]
     Active Substance: CITALOPRAM HYDROBROMIDE
  3. LORAZEPAM. [Suspect]
     Active Substance: LORAZEPAM
     Indication: DEPRESSION

REACTIONS (7)
  - Rapid eye movements sleep abnormal [None]
  - Hallucination, visual [None]
  - Extrapyramidal disorder [None]
  - Parkinson^s disease [None]
  - Nightmare [None]
  - Sleep disorder [None]
  - Dysarthria [None]
